FAERS Safety Report 14421390 (Version 3)
Quarter: 2020Q4

REPORT INFORMATION
  Report Type: Spontaneous
  Country: US (occurrence: US)
  Receive Date: 20180122
  Receipt Date: 20201003
  Transmission Date: 20210113
  Serious: No
  Sender: FDA-Public Use
  Company Number: US-009507513-1712USA013164

PATIENT
  Sex: Male

DRUGS (3)
  1. ASMANEX [Suspect]
     Active Substance: MOMETASONE FUROATE
     Dosage: UNK
  2. ASMANEX [Suspect]
     Active Substance: MOMETASONE FUROATE
     Dosage: 2 INHALATIONS, ONCE A DAY
     Route: 055
  3. ASMANEX HFA [Suspect]
     Active Substance: MOMETASONE FUROATE
     Dosage: UNK, 4 TIMES A DAY

REACTIONS (5)
  - Incorrect dose administered [Unknown]
  - No adverse event [Unknown]
  - Poor quality device used [Unknown]
  - Inappropriate schedule of product administration [Unknown]
  - Product quality issue [Unknown]
